FAERS Safety Report 21775688 (Version 1)
Quarter: 2022Q4

REPORT INFORMATION
  Report Type: Spontaneous
  Country: US (occurrence: US)
  Receive Date: 20221226
  Receipt Date: 20221226
  Transmission Date: 20230112
  Serious: No
  Sender: FDA-Public Use
  Company Number: US-Accord-272784

PATIENT
  Age: 33 Year
  Sex: Female
  Weight: 58.64 kg

DRUGS (1)
  1. BUPROPION HYDROCHLORIDE [Suspect]
     Active Substance: BUPROPION HYDROCHLORIDE
     Indication: Antidepressant therapy
     Route: 048

REACTIONS (5)
  - Abdominal pain upper [Recovered/Resolved]
  - Feeling jittery [Recovered/Resolved]
  - Headache [Recovered/Resolved]
  - Abdominal discomfort [Recovered/Resolved]
  - Product odour abnormal [Unknown]

NARRATIVE: CASE EVENT DATE: 20220803
